FAERS Safety Report 8774409 (Version 4)
Quarter: 2013Q3

REPORT INFORMATION
  Report Type: Report from Study
  Country: JP (occurrence: JP)
  Receive Date: 20120907
  Receipt Date: 20130802
  Transmission Date: 20140515
  Serious: Yes (Hospitalization, Other)
  Sender: FDA-Public Use
  Company Number: JP-SHIRE-ALL1-2011-02377

PATIENT
  Age: 72 Year
  Sex: Male
  Weight: 62.8 kg

DRUGS (56)
  1. CALTAN [Concomitant]
     Dosage: 2G  (ON NON-DIALYSIS DAYS)
     Route: 048
     Dates: start: 20100718
  2. CALTAN [Concomitant]
     Dosage: 3 G, UNKNOWN
     Route: 048
     Dates: start: 20110123, end: 20110423
  3. CALTAN [Concomitant]
     Dosage: 1.5 G(ON DIALYSIS DAYS)
     Route: 048
     Dates: start: 20110424, end: 20110521
  4. CALTAN [Concomitant]
     Dosage: 1 G (ON NON-DIALYSIS DAYS)
     Route: 048
     Dates: start: 20110424, end: 20110521
  5. CALTAN [Concomitant]
     Dosage: 2 G (ON DIALYSIS DAYS), UNKNOWN
     Route: 048
     Dates: start: 20110522, end: 20110611
  6. CALTAN [Concomitant]
     Dosage: 1.5 G ( ON NON-DIALYSIS DAYS)
     Route: 048
     Dates: start: 20110522, end: 20110611
  7. CALTAN [Concomitant]
     Dosage: 3 G (ON DIALYSIS DAYS)
     Route: 048
     Dates: start: 20110612, end: 20111111
  8. CALTAN [Concomitant]
     Dosage: 2 G (ON NON-DIALYSIS DAYS)
     Route: 048
     Dates: start: 20110612, end: 20111111
  9. CALTAN [Concomitant]
     Dosage: 1 G, UNKNOWN
     Route: 048
     Dates: start: 20120115
  10. ALFAROL [Concomitant]
     Indication: PRODUCT USED FOR UNKNOWN INDICATION
     Dosage: 0.25 ?G, UNKNOWN
     Route: 048
     Dates: start: 19970410, end: 20100717
  11. ALFAROL [Concomitant]
     Dosage: 0.5 ?G, UNKNOWN
     Route: 048
     Dates: start: 20100718, end: 20100911
  12. ALFAROL [Concomitant]
     Dosage: 0.25 ?G, UNKNOWN
     Route: 048
     Dates: start: 20100912, end: 20101016
  13. ALFAROL [Concomitant]
     Dosage: 1 ?G, 1X/WEEK
     Route: 048
     Dates: start: 20101017, end: 20101211
  14. ALFAROL [Concomitant]
     Dosage: 0.25 ?G, UNKNOWN
     Route: 048
     Dates: start: 20101212
  15. ALFAROL [Concomitant]
     Dosage: 1 ?G, 1X/WEEK
     Route: 048
     Dates: start: 20101219, end: 20110115
  16. ALFAROL [Concomitant]
     Dosage: 0.5 ?G, UNKNOWN
     Route: 048
     Dates: start: 20111218, end: 20120218
  17. ALFAROL [Concomitant]
     Dosage: 0.25 ?G, UNKNOWN
     Route: 048
     Dates: start: 20120219, end: 20121215
  18. ALFAROL [Concomitant]
     Dosage: 0.5 ?G, UNKNOWN
     Route: 048
     Dates: start: 20121216, end: 20130413
  19. ALFAROL [Concomitant]
     Dosage: 0.25 ?G, UNKNOWN
     Route: 048
     Dates: start: 20130414, end: 20130608
  20. ALFAROL [Concomitant]
     Dosage: 0.5 ?G, UNKNOWN
     Route: 048
     Dates: start: 20130609
  21. REGPARA [Concomitant]
     Indication: HYPERPARATHYROIDISM SECONDARY
     Dosage: 50 MG, UNKNOWN
     Route: 048
     Dates: start: 20080610, end: 20111111
  22. REGPARA [Concomitant]
     Dosage: 200 MG, 1X/WEEK
     Route: 048
     Dates: start: 20111113, end: 20111119
  23. REGPARA [Concomitant]
     Dosage: 50 MG, UNKNOWN
     Route: 048
     Dates: start: 20111120, end: 20111203
  24. REGPARA [Concomitant]
     Dosage: 50 MG (ON DIALYSIS DAY)
     Route: 048
     Dates: start: 20111204, end: 20120310
  25. REGPARA [Concomitant]
     Dosage: 65 MG (ON NON-DIALYSIS DAY)
     Route: 048
     Dates: start: 20111204, end: 20120310
  26. REGPARA [Concomitant]
     Dosage: 50 MG, UNKNOWN
     Route: 048
     Dates: start: 20120311
  27. BIO THREE                          /01960101/ [Concomitant]
     Indication: PRODUCT USED FOR UNKNOWN INDICATION
     Dosage: 3 DF, UNKNOWN
     Route: 048
  28. ZYLORIC [Concomitant]
     Indication: PRODUCT USED FOR UNKNOWN INDICATION
     Dosage: 50 MG, UNKNOWN
     Route: 048
  29. BAYASPIRIN [Concomitant]
     Indication: PRODUCT USED FOR UNKNOWN INDICATION
     Dosage: 100 MG, UNKNOWN
     Route: 048
  30. SELOKEN                            /00376902/ [Concomitant]
     Indication: PRODUCT USED FOR UNKNOWN INDICATION
     Dosage: 20 MG (ON DIALYSIS DAYS)
     Route: 048
  31. SELOKEN                            /00376902/ [Concomitant]
     Dosage: 40 MG (ON NON-DIALYSIS DAYS)
     Route: 048
  32. PARIET [Concomitant]
     Indication: PRODUCT USED FOR UNKNOWN INDICATION
     Dosage: 10 MG, UNKNOWN
     Route: 048
  33. LAXOBERON [Concomitant]
     Indication: PRODUCT USED FOR UNKNOWN INDICATION
     Dosage: UNK, UNKNOWN
     Route: 048
  34. SORBITOL [Concomitant]
     Indication: PRODUCT USED FOR UNKNOWN INDICATION
     Dosage: 21 ML, UNKNOWN
     Route: 048
  35. PURSENNID                          /00142207/ [Concomitant]
     Indication: PRODUCT USED FOR UNKNOWN INDICATION
     Dosage: 24 MG, UNKNOWN
     Route: 048
  36. RISUMIC [Concomitant]
     Indication: PRODUCT USED FOR UNKNOWN INDICATION
     Dosage: 10 MG( ON DIALYSIS DAYS)
     Route: 048
  37. DOPS [Concomitant]
     Indication: PRODUCT USED FOR UNKNOWN INDICATION
     Dosage: 20 MG(ON DIALYSIS DAYS)
     Route: 048
  38. NEOPHAGEN                          /00518801/ [Concomitant]
     Indication: PRODUCT USED FOR UNKNOWN INDICATION
     Dosage: 20 ML (ON DIALYSIS DAYS)
     Route: 042
  39. ROCALTROL [Concomitant]
     Indication: PRODUCT USED FOR UNKNOWN INDICATION
     Dosage: 4.5 ?G, 1X/WEEK
     Route: 042
     Dates: start: 20110215, end: 20110319
  40. ROCALTROL [Concomitant]
     Dosage: 7.5 ?G, 1X/WEEK
     Route: 042
     Dates: start: 20110322, end: 20110421
  41. ROCALTROL [Concomitant]
     Dosage: 1.5 ?G, 1X/WEEK
     Route: 042
     Dates: start: 20110514, end: 20110716
  42. FULSTAN [Concomitant]
     Indication: PRODUCT USED FOR UNKNOWN INDICATION
     Dosage: 0.15 ?G, UNKNOWN
     Route: 048
     Dates: start: 20110717, end: 20110813
  43. FULSTAN [Concomitant]
     Dosage: 0.6 ?G, 1X/WEEK
     Route: 048
     Dates: start: 20110814, end: 20111111
  44. 405 (LANTHANUM CARBONATE) [Suspect]
     Indication: HYPERPHOSPHATAEMIA
     Dosage: 750 MG TOTAL DAILY DOSE (IMMEDIATELY AFTER MEALS)
     Route: 048
     Dates: start: 20100615, end: 20100717
  45. 405 (LANTHANUM CARBONATE) [Suspect]
     Dosage: 750 MG (ON DIALYSIS DAYS)
     Route: 048
     Dates: start: 20100718, end: 20100828
  46. 405 (LANTHANUM CARBONATE) [Suspect]
     Dosage: 500 MG(ON NON-DIALYSIS DAYS)
     Route: 048
     Dates: start: 20100718, end: 20100828
  47. 405 (LANTHANUM CARBONATE) [Suspect]
     Dosage: 750 MG (ON DIALYSIS DAYS)
     Route: 048
     Dates: start: 20100829, end: 20101204
  48. 405 (LANTHANUM CARBONATE) [Suspect]
     Dosage: 1000 MG (ON NON-DIALYSIS DAYS), UNK
     Route: 048
     Dates: start: 20100829, end: 20101204
  49. 405 (LANTHANUM CARBONATE) [Suspect]
     Dosage: 1500 MG(ON DIALYSIS DAYS),
     Route: 048
     Dates: start: 20101205, end: 20110122
  50. 405 (LANTHANUM CARBONATE) [Suspect]
     Dosage: 1000 MG(ON NON-DIALYSIS DAYS)
     Route: 048
     Dates: start: 20101205, end: 20110122
  51. 405 (LANTHANUM CARBONATE) [Suspect]
     Dosage: 1500 MG, UNKNOWN
     Route: 048
     Dates: start: 20110123, end: 20110507
  52. 405 (LANTHANUM CARBONATE) [Suspect]
     Dosage: 1500 MG ON DIALYSIS DAYS
     Route: 048
     Dates: start: 20110630, end: 20120512
  53. 405 (LANTHANUM CARBONATE) [Suspect]
     Dosage: 1000 MG ON NON-DIALYSIS DAYS
     Route: 048
     Dates: start: 20110630, end: 20120512
  54. 405 (LANTHANUM CARBONATE) [Suspect]
     Dosage: 1500 MG, UNKNOWN
     Route: 048
     Dates: start: 20120513
  55. CALTAN [Concomitant]
     Indication: HYPERPHOSPHATAEMIA
     Dosage: 3 G, UNKNOWN
     Route: 048
     Dates: start: 19970410, end: 20100717
  56. CALTAN [Concomitant]
     Dosage: 3 G (ON DIALYSIS DAYS)
     Route: 048
     Dates: start: 20100718

REACTIONS (2)
  - Acute myocardial infarction [Recovering/Resolving]
  - Cardiac failure congestive [Recovering/Resolving]
